FAERS Safety Report 7976568-5 (Version None)
Quarter: 2011Q4

REPORT INFORMATION
  Report Type: 
  Country: None (occurrence: None)
  Receive Date: 20111213
  Receipt Date: 20111026
  Transmission Date: 20120403
  Serious: Yes (Other)
  Sender: FDA-Public Use
  Company Number: US-AMGEN-USASP2011053271

PATIENT
  Age: 11 Year
  Sex: Female

DRUGS (1)
  1. ENBREL [Suspect]
     Indication: JUVENILE ARTHRITIS
     Dosage: 25 MG, 2 TIMES/WK
     Dates: start: 20110914, end: 20111012

REACTIONS (7)
  - CONTUSION [None]
  - EPISTAXIS [None]
  - PLATELET COUNT DECREASED [None]
  - INJECTION SITE SWELLING [None]
  - SWELLING [None]
  - PARONYCHIA [None]
  - INJECTION SITE HAEMATOMA [None]
